FAERS Safety Report 25776323 (Version 1)
Quarter: 2025Q3

REPORT INFORMATION
  Report Type: Spontaneous
  Country: US (occurrence: US)
  Receive Date: 20250909
  Receipt Date: 20250909
  Transmission Date: 20251020
  Serious: No
  Sender: DOMPE FARMACEUTICI
  Company Number: US-FARMAPROD-202408-2984

PATIENT
  Sex: Male

DRUGS (13)
  1. OXERVATE [Suspect]
     Active Substance: CENEGERMIN-BKBJ
     Indication: Neurotrophic keratopathy
     Route: 047
     Dates: start: 20240809
  2. OXERVATE [Suspect]
     Active Substance: CENEGERMIN-BKBJ
  3. REFRESH CLASSIC [Concomitant]
     Active Substance: POLYVINYL ALCOHOL\POVIDONE
  4. PROTONIX [Concomitant]
     Active Substance: PANTOPRAZOLE SODIUM
  5. METOPROLOL SUCCINATE [Concomitant]
     Active Substance: METOPROLOL SUCCINATE
  6. MURO 128 [Concomitant]
     Active Substance: SODIUM CHLORIDE
  7. LISINOPRIL [Concomitant]
     Active Substance: LISINOPRIL
  8. ATORVASTATIN CALCIUM [Concomitant]
     Active Substance: ATORVASTATIN CALCIUM
  9. GLYBURIDE-METFORMIN HCL [Concomitant]
  10. HYDROCHLOROTHIAZIDE [Concomitant]
     Active Substance: HYDROCHLOROTHIAZIDE
  11. FAMOTIDINE [Concomitant]
     Active Substance: FAMOTIDINE
  12. SUCRALFATE [Concomitant]
     Active Substance: SUCRALFATE
  13. GABAPENTIN [Concomitant]
     Active Substance: GABAPENTIN

REACTIONS (1)
  - Eye pain [Not Recovered/Not Resolved]
